FAERS Safety Report 18966369 (Version 2)
Quarter: 2021Q2

REPORT INFORMATION
  Report Type: Report from Study
  Country: GR (occurrence: GR)
  Receive Date: 20210303
  Receipt Date: 20210407
  Transmission Date: 20210717
  Serious: Yes (Hospitalization)
  Sender: FDA-Public Use
  Company Number: GR-BAUSCH-BL-2021-007031

PATIENT
  Age: 65 Year
  Sex: Male
  Weight: 71 kg

DRUGS (2)
  1. KYNTHEUM [Suspect]
     Active Substance: BRODALUMAB
     Indication: PSORIASIS
     Dosage: 210 MG IN WEEKS 0,1,2 AND THEN BIWEEKLY
     Route: 058
     Dates: start: 20191014, end: 20201208
  2. KYNTHEUM [Suspect]
     Active Substance: BRODALUMAB
     Dosage: 210 MG IN WEEKS 0,1,2 AND THEN BIWEEKLY
     Route: 058
     Dates: start: 20210205

REACTIONS (2)
  - Therapy interrupted [Unknown]
  - Acute myocardial infarction [Recovered/Resolved]

NARRATIVE: CASE EVENT DATE: 20201208
